FAERS Safety Report 18876662 (Version 1)
Quarter: 2021Q1

REPORT INFORMATION
  Report Type: Report from Study
  Country: IT (occurrence: IT)
  Receive Date: 20210211
  Receipt Date: 20210211
  Transmission Date: 20210420
  Serious: Yes (Hospitalization)
  Sender: FDA-Public Use
  Company Number: IT-TEVA-2021-IT-1877996

PATIENT
  Age: 85 Year
  Sex: Male

DRUGS (5)
  1. RAMIPRIL. [Suspect]
     Active Substance: RAMIPRIL
     Dosage: 2.5 MG
     Route: 048
     Dates: start: 20200101, end: 20210110
  2. SIVASTIN [Concomitant]
     Active Substance: SIMVASTATIN
     Dosage: 20 MG
  3. ASCRIPTIN [Concomitant]
     Active Substance: ASPIRIN
  4. LANSOX 15 MG CAPSULE RIGIDE [Concomitant]
  5. METOPROLOL. [Suspect]
     Active Substance: METOPROLOL
     Dosage: 100 MG
     Route: 048
     Dates: start: 20200101, end: 20210110

REACTIONS (2)
  - Orthostatic hypotension [Not Recovered/Not Resolved]
  - Dizziness [Not Recovered/Not Resolved]

NARRATIVE: CASE EVENT DATE: 20210110
